FAERS Safety Report 6135373-5 (Version None)
Quarter: 2009Q1

REPORT INFORMATION
  Report Type: 
  Country: None (occurrence: None)
  Receive Date: 20090327
  Receipt Date: 20090316
  Transmission Date: 20090719
  Serious: Yes (Hospitalization)
  Sender: FDA-Public Use
  Company Number: BR-PFIZER INC-2009168193

PATIENT

DRUGS (5)
  1. MARAVIROC [Suspect]
     Indication: HIV INFECTION
     Dosage: UNK
     Route: 048
  2. ACYCLOVIR [Concomitant]
     Dosage: UNK
     Route: 048
     Dates: start: 20081217, end: 20081223
  3. ACYCLOVIR [Concomitant]
     Dosage: UNK
     Route: 061
     Dates: start: 20090210, end: 20090214
  4. IBUPROFEN [Concomitant]
     Dosage: UNK
     Route: 048
     Dates: start: 20081218, end: 20081220
  5. KETOCONAZOLE [Concomitant]
     Dosage: UNK
     Route: 061
     Dates: start: 20090210

REACTIONS (1)
  - FAT TISSUE INCREASED [None]
